FAERS Safety Report 7795411-0 (Version None)
Quarter: 2011Q3

REPORT INFORMATION
  Report Type: 
  Country: None (occurrence: None)
  Receive Date: 20110930
  Receipt Date: 20110923
  Transmission Date: 20111222
  Serious: Yes (Hospitalization, Other)
  Sender: FDA-Public Use
  Company Number: 124016

PATIENT
  Age: 31 Year
  Sex: Female

DRUGS (1)
  1. PROPRANOLOL HCI INJ. 1MG/1ML - BEDFORD LABS, INC. [Suspect]
     Dosage: 3.6 GRAMS

REACTIONS (15)
  - CONVULSION [None]
  - ELECTROCARDIOGRAM QRS COMPLEX PROLONGED [None]
  - ELECTROCARDIOGRAM PR PROLONGATION [None]
  - BLOOD GLUCOSE DECREASED [None]
  - TACHYCARDIA [None]
  - MEDICATION ERROR [None]
  - RESPIRATORY RATE DECREASED [None]
  - OXYGEN SATURATION DECREASED [None]
  - NODAL RHYTHM [None]
  - GENERAL PHYSICAL HEALTH DETERIORATION [None]
  - TOXICITY TO VARIOUS AGENTS [None]
  - ALCOHOL USE [None]
  - SUPRAVENTRICULAR TACHYCARDIA [None]
  - OVERDOSE [None]
  - BLOOD PRESSURE IMMEASURABLE [None]
